FAERS Safety Report 11625099 (Version 1)
Quarter: 2015Q4

REPORT INFORMATION
  Report Type: Spontaneous
  Country: FR (occurrence: FR)
  Receive Date: 20151013
  Receipt Date: 20151013
  Transmission Date: 20160304
  Serious: Yes (Hospitalization)
  Sender: FDA-Public Use
  Company Number: FR-MEDA-2015100026

PATIENT
  Age: 94 Year
  Sex: Male

DRUGS (8)
  1. SIMVASTATIN. [Suspect]
     Active Substance: SIMVASTATIN
     Route: 048
  2. SILODOSIN [Suspect]
     Active Substance: SILODOSIN
     Dosage: 1/2 TABLET (4 MG, 1 IN 1 D)
     Route: 048
     Dates: end: 20150901
  3. AMIODARONE [Suspect]
     Active Substance: AMIODARONE
     Route: 048
  4. FUROSEMIDE. [Suspect]
     Active Substance: FUROSEMIDE
     Route: 048
  5. ZOLPIDEM [Suspect]
     Active Substance: ZOLPIDEM\ZOLPIDEM TARTRATE
     Dates: end: 20150901
  6. PREVISCAN 20 MG [Suspect]
     Active Substance: FLUINDIONE
     Route: 048
  7. INEXIUM 20 MG [Suspect]
     Active Substance: ESOMEPRAZOLE
     Indication: GASTROINTESTINAL DISORDER
     Route: 048
     Dates: end: 20150910
  8. BISOPROLOL 5 MG [Suspect]
     Active Substance: BISOPROLOL
     Route: 048

REACTIONS (1)
  - Pathological fracture [Recovering/Resolving]

NARRATIVE: CASE EVENT DATE: 201505
